FAERS Safety Report 19536548 (Version 1)
Quarter: 2021Q3

REPORT INFORMATION
  Report Type: Spontaneous
  Country: FR (occurrence: FR)
  Receive Date: 20210714
  Receipt Date: 20210714
  Transmission Date: 20211014
  Serious: Yes (Life-Threatening, Other)
  Sender: FDA-Public Use
  Company Number: FR-JNJFOC-20210725375

PATIENT
  Age: 19 Year
  Sex: Female

DRUGS (1)
  1. TRAMADOL HYDROCHLORIDE. [Suspect]
     Active Substance: TRAMADOL HYDROCHLORIDE
     Indication: PRODUCT USED FOR UNKNOWN INDICATION
     Dosage: UNK
     Route: 065

REACTIONS (12)
  - Speech disorder [Unknown]
  - Mental impairment [Unknown]
  - Mood swings [Unknown]
  - Intentional overdose [Unknown]
  - Drug abuser [Unknown]
  - Crying [Unknown]
  - Drug dependence [Unknown]
  - Withdrawal syndrome [Unknown]
  - Fatigue [Unknown]
  - Weight increased [Unknown]
  - Somnolence [Unknown]
  - Disturbance in attention [Unknown]
